FAERS Safety Report 25946014 (Version 2)
Quarter: 2025Q4

REPORT INFORMATION
  Report Type: Report from Study
  Country: US (occurrence: US)
  Receive Date: 20251021
  Receipt Date: 20251215
  Transmission Date: 20260117
  Serious: Yes (Hospitalization)
  Sender: ABBVIE
  Company Number: US-ABBVIE-6203323

PATIENT
  Sex: Male

DRUGS (2)
  1. RINVOQ [Suspect]
     Active Substance: UPADACITINIB
     Indication: Crohn^s disease
     Route: 048
     Dates: start: 20241213, end: 20250930
  2. RINVOQ [Suspect]
     Active Substance: UPADACITINIB
     Indication: Crohn^s disease
     Route: 048
     Dates: start: 20241102, end: 2024

REACTIONS (7)
  - Intestinal ulcer [Unknown]
  - Drug ineffective [Unknown]
  - Therapeutic product effect incomplete [Not Recovered/Not Resolved]
  - Frequent bowel movements [Not Recovered/Not Resolved]
  - Pain [Recovered/Resolved]
  - Gastrointestinal scarring [Unknown]
  - Gastrointestinal disorder [Unknown]
